FAERS Safety Report 24221569 (Version 2)
Quarter: 2024Q4

REPORT INFORMATION
  Report Type: Spontaneous
  Country: US (occurrence: US)
  Receive Date: 20240819
  Receipt Date: 20241213
  Transmission Date: 20250114
  Serious: No
  Sender: LUPIN
  Company Number: US-LUPIN PHARMACEUTICALS INC.-2024-07495

PATIENT

DRUGS (4)
  1. ALBUTEROL SULFATE [Suspect]
     Active Substance: ALBUTEROL SULFATE
     Indication: Asthma
     Dosage: UNK, QD, 2-3 PUFFS
     Dates: start: 202407
  2. ALBUTEROL SULFATE [Suspect]
     Active Substance: ALBUTEROL SULFATE
     Dosage: UNK, QD, 2-3 PUFFS
     Dates: start: 202407
  3. ALBUTEROL SULFATE [Suspect]
     Active Substance: ALBUTEROL SULFATE
     Dosage: UNK, QD, 2-3 PUFFS
     Dates: start: 202407
  4. ALBUTEROL SULFATE [Suspect]
     Active Substance: ALBUTEROL SULFATE
     Dosage: UNK, QD, 2-3 PUFFS
     Dates: start: 202407

REACTIONS (3)
  - Wrong technique in product usage process [Unknown]
  - Wrong technique in device usage process [Unknown]
  - No adverse event [Unknown]
